FAERS Safety Report 7134124-5 (Version None)
Quarter: 2010Q4

REPORT INFORMATION
  Report Type: 
  Country: None (occurrence: None)
  Receive Date: 20101203
  Receipt Date: 20101126
  Transmission Date: 20110411
  Serious: Yes (Hospitalization)
  Sender: FDA-Public Use
  Company Number: FR-PFIZER INC-2010094497

PATIENT
  Age: 71 Year
  Sex: Male

DRUGS (6)
  1. PREDNISONE [Suspect]
     Indication: PROSTATE CANCER
     Dosage: 5 MG, 2X/DAY
     Route: 048
     Dates: start: 20100130
  2. BLINDED *NO SUBJECT DRUG [Suspect]
     Indication: PROSTATE CANCER
     Dosage: 37.5 MG, 1X/DAY
     Route: 048
     Dates: start: 20100130
  3. PLACEBO [Suspect]
     Indication: PROSTATE CANCER
     Dosage: 37.5 MG, 1X/DAY
     Route: 048
     Dates: start: 20100130
  4. SUNITINIB MALATE [Suspect]
     Indication: PROSTATE CANCER
     Dosage: 37.5 MG, 1X/DAY
     Route: 048
     Dates: start: 20100130
  5. NEBIVOLOL [Concomitant]
     Indication: HYPERTENSION
     Dosage: 10 MG, 1X/DAY
     Route: 048
     Dates: start: 19800101
  6. FLUDEX [Concomitant]
     Indication: HYPERTENSION
     Dosage: 2.5 MG, 1X/DAY
     Route: 048
     Dates: start: 20100601

REACTIONS (4)
  - CELLULITIS [None]
  - DIVERTICULAR PERFORATION [None]
  - PERITONITIS [None]
  - PHLEBITIS [None]
